FAERS Safety Report 9312885 (Version 3)
Quarter: 2014Q3

REPORT INFORMATION
  Report Type: Spontaneous
  Country: CA (occurrence: CA)
  Receive Date: 20130528
  Receipt Date: 20140916
  Transmission Date: 20150326
  Serious: Yes (Life-Threatening, Hospitalization)
  Sender: FDA-Public Use
  Company Number: CA-PFIZER INC-2013162733

PATIENT
  Sex: Male
  Weight: 2 kg

DRUGS (6)
  1. OXYCODONE [Suspect]
     Active Substance: OXYCODONE
     Dosage: UNK, ONCE EVERY 6 HOURS
     Route: 063
  2. TYLENOL WITH CODEINE [Suspect]
     Active Substance: ACETAMINOPHEN\CODEINE PHOSPHATE
     Dosage: 3 DF, UNK
     Route: 063
  3. CODEINE [Suspect]
     Active Substance: CODEINE
     Dosage: 2.1 MG/KG
     Route: 063
  4. IBUPROFEN. [Suspect]
     Active Substance: IBUPROFEN
     Dosage: UNK
     Route: 063
  5. OXYCODONE [Suspect]
     Active Substance: OXYCODONE
     Dosage: UNK, ONCE EVERY 4 HOURS
     Route: 063
  6. PARACETAMOL [Suspect]
     Active Substance: ACETAMINOPHEN
     Dosage: UNK
     Route: 063

REACTIONS (4)
  - Hypersomnia [Unknown]
  - Lethargy [Unknown]
  - Exposure during breast feeding [Unknown]
  - Respiratory arrest [Unknown]
